FAERS Safety Report 24331207 (Version 1)
Quarter: 2024Q3

REPORT INFORMATION
  Report Type: Report from Study
  Country: US (occurrence: US)
  Receive Date: 20240918
  Receipt Date: 20240918
  Transmission Date: 20241016
  Serious: No
  Sender: ACCORD
  Company Number: US-Accord-413568

PATIENT
  Age: 67 Year
  Sex: Male

DRUGS (3)
  1. LISINOPRIL [Suspect]
     Active Substance: LISINOPRIL
     Indication: Product used for unknown indication
     Route: 065
  2. RELUGOLIX [Suspect]
     Active Substance: RELUGOLIX
     Indication: Prostate cancer
     Dosage: STRENGTH: 120 MILLIGRAM, ONE TIME DOSE
     Route: 048
  3. RELUGOLIX [Suspect]
     Active Substance: RELUGOLIX
     Indication: Prostate cancer
     Dosage: STRENGTH: 120 MILLIGRAM
     Route: 048

REACTIONS (2)
  - Dizziness [Unknown]
  - Hypotension [Recovering/Resolving]
